FAERS Safety Report 16610304 (Version 2)
Quarter: 2021Q1

REPORT INFORMATION
  Report Type: Spontaneous
  Country: DE (occurrence: DE)
  Receive Date: 20190722
  Receipt Date: 20210216
  Transmission Date: 20210419
  Serious: Yes (Hospitalization, Other)
  Sender: FDA-Public Use
  Company Number: DE-JNJFOC-20190700707

PATIENT
  Age: 42 Year
  Sex: Male

DRUGS (2)
  1. TREMFYA [Suspect]
     Active Substance: GUSELKUMAB
     Indication: PRODUCT USED FOR UNKNOWN INDICATION
     Route: 065
     Dates: start: 201906
  2. TREMFYA [Suspect]
     Active Substance: GUSELKUMAB

REACTIONS (7)
  - Cerebrovascular accident [Unknown]
  - Head discomfort [Unknown]
  - Gastroenteritis [Unknown]
  - Diarrhoea [Recovered/Resolved]
  - Dysuria [Unknown]
  - Headache [Unknown]
  - Pyrexia [Not Recovered/Not Resolved]
